FAERS Safety Report 6400911-1 (Version None)
Quarter: 2009Q4

REPORT INFORMATION
  Report Type: 
  Country: None (occurrence: None)
  Receive Date: 20091009
  Receipt Date: 20090925
  Transmission Date: 20100525
  Serious: Yes (Hospitalization)
  Sender: FDA-Public Use
  Company Number: 231273J09USA

PATIENT
  Age: 69 Year
  Sex: Female

DRUGS (2)
  1. REBIF [Suspect]
     Indication: MULTIPLE SCLEROSIS
     Dosage: 44 MCG, 3 IN 1 WEEKS, SUBCUTANEOUS
     Route: 058
     Dates: start: 20060529
  2. VALIUM [Concomitant]

REACTIONS (3)
  - ASTHENIA [None]
  - ATRIAL FIBRILLATION [None]
  - DYSPNOEA [None]
